FAERS Safety Report 7955792-1 (Version None)
Quarter: 2011Q4

REPORT INFORMATION
  Report Type: 
  Country: None (occurrence: None)
  Receive Date: 20111205
  Receipt Date: 20111123
  Transmission Date: 20120403
  Serious: Yes (Hospitalization, Other)
  Sender: FDA-Public Use
  Company Number: FR-BIOGENIDEC-2011BI023757

PATIENT
  Age: 40 Year
  Sex: Male
  Weight: 75 kg

DRUGS (9)
  1. AMYTRIPTYLINE [Concomitant]
  2. TETRAZEPAM [Concomitant]
     Indication: MUSCLE SPASTICITY
     Dates: start: 20041030
  3. ANTIHYPERTENSIVES [Concomitant]
  4. TYSABRI [Suspect]
     Indication: MULTIPLE SCLEROSIS
     Route: 042
     Dates: start: 20070809, end: 20080729
  5. BACLOFEN [Concomitant]
     Indication: MUSCLE SPASTICITY
     Dates: start: 20080330, end: 20080929
  6. CLONAZEPAM [Concomitant]
     Indication: MUSCLE SPASTICITY
     Dates: start: 20060130
  7. CLONAZEPAM [Concomitant]
     Indication: PAIN
     Dates: start: 20060130
  8. TYSABRI [Suspect]
     Route: 042
     Dates: start: 20081110
  9. MUSCLE RELAXANTS [Concomitant]

REACTIONS (1)
  - COGNITIVE DISORDER [None]
